FAERS Safety Report 4997168-5 (Version None)
Quarter: 2006Q2

REPORT INFORMATION
  Report Type: 
  Country: None (occurrence: None)
  Receive Date: 20060509
  Receipt Date: 20060324
  Transmission Date: 20061013
  Serious: Yes (Death)
  Sender: FDA-Public Use
  Company Number: CA-NOVOPROD-252990

PATIENT
  Age: 78 Year
  Sex: Female
  Weight: 80 kg

DRUGS (5)
  1. NIASTASE [Suspect]
     Indication: HAEMORRHAGE
     Dosage: 1.2 MG, SINGLE
     Route: 042
     Dates: start: 20060323
  2. NIASTASE [Suspect]
     Dosage: 2.4 MG, SINGLE
     Route: 042
     Dates: start: 20060323
  3. NIASTASE [Suspect]
     Dosage: 4.8 MG, SINGLE
     Route: 042
     Dates: start: 20060323
  4. NIASTASE [Suspect]
     Dosage: 1.2 MG, SINGLE
     Route: 042
     Dates: start: 20060323
  5. NIASTASE [Suspect]
     Dosage: 3.6 MG, SINGLE
     Route: 042
     Dates: start: 20060324

REACTIONS (1)
  - POST PROCEDURAL HAEMORRHAGE [None]
